FAERS Safety Report 13600406 (Version 2)
Quarter: 2017Q2

REPORT INFORMATION
  Report Type: Spontaneous
  Country: US (occurrence: US)
  Receive Date: 20170601
  Receipt Date: 20170606
  Transmission Date: 20170830
  Serious: No
  Sender: FDA-Public Use
  Company Number: US-PFIZER INC-2017240198

PATIENT
  Age: 55 Year
  Sex: Female
  Weight: 63.95 kg

DRUGS (1)
  1. AROMASIN [Suspect]
     Active Substance: EXEMESTANE
     Indication: BREAST CANCER
     Dosage: 25 MG, 1X/DAY
     Route: 048
     Dates: start: 20170308

REACTIONS (1)
  - Breast swelling [Recovered/Resolved]

NARRATIVE: CASE EVENT DATE: 201705
